FAERS Safety Report 7663883-8 (Version None)
Quarter: 2011Q3

REPORT INFORMATION
  Report Type: 
  Country: None (occurrence: None)
  Receive Date: 20110805
  Receipt Date: 20100728
  Transmission Date: 20111222
  Serious: No
  Sender: FDA-Public Use
  Company Number: US-ABBOTT-10P-163-0661958-00

PATIENT
  Sex: Male

DRUGS (2)
  1. NIASPAN [Suspect]
     Indication: BLOOD CHOLESTEROL INCREASED
     Dates: start: 20100501, end: 20100501
  2. NIASPAN [Suspect]
     Dosage: EVERY NIGHT
     Dates: start: 20100720, end: 20100725

REACTIONS (4)
  - ERYTHEMA [None]
  - LOCAL SWELLING [None]
  - BLISTER [None]
  - PRURITUS [None]
